FAERS Safety Report 22624688 (Version 1)
Quarter: 2023Q2

REPORT INFORMATION
  Report Type: Report from Study
  Country: DE (occurrence: DE)
  Receive Date: 20230621
  Receipt Date: 20230621
  Transmission Date: 20230722
  Serious: Yes (Hospitalization)
  Sender: FDA-Public Use
  Company Number: DE-AMGEN-DEUNI2018119454

PATIENT
  Age: 79 Year
  Sex: Male
  Weight: 67 kg

DRUGS (46)
  1. LEUCOVORIN CALCIUM [Suspect]
     Active Substance: LEUCOVORIN CALCIUM
     Indication: Colorectal cancer metastatic
     Dosage: 1650 MG
     Route: 065
     Dates: start: 20170206
  2. LEUCOVORIN CALCIUM [Suspect]
     Active Substance: LEUCOVORIN CALCIUM
     Dosage: 550 MG
     Route: 065
     Dates: start: 20170220
  3. LEUCOVORIN CALCIUM [Suspect]
     Active Substance: LEUCOVORIN CALCIUM
     Dosage: 560 MG
     Route: 065
     Dates: start: 20170508
  4. LEUCOVORIN CALCIUM [Suspect]
     Active Substance: LEUCOVORIN CALCIUM
     Dosage: 570 MG
     Route: 065
     Dates: start: 20171212
  5. LEUCOVORIN CALCIUM [Suspect]
     Active Substance: LEUCOVORIN CALCIUM
     Dosage: 560 MG
     Route: 065
     Dates: start: 20180110
  6. LEUCOVORIN CALCIUM [Suspect]
     Active Substance: LEUCOVORIN CALCIUM
     Dosage: 492 MG
     Route: 065
     Dates: start: 20180723
  7. LEUCOVORIN CALCIUM [Suspect]
     Active Substance: LEUCOVORIN CALCIUM
     Dosage: 704 MG
     Route: 065
     Dates: start: 20180806
  8. IRINOTECAN HYDROCHLORIDE [Suspect]
     Active Substance: IRINOTECAN HYDROCHLORIDE
     Indication: Colorectal cancer metastatic
     Dosage: 750 MG
     Route: 065
     Dates: start: 20170206
  9. IRINOTECAN HYDROCHLORIDE [Suspect]
     Active Substance: IRINOTECAN HYDROCHLORIDE
     Dosage: 250 MG
     Route: 065
     Dates: start: 20170220
  10. IRINOTECAN HYDROCHLORIDE [Suspect]
     Active Substance: IRINOTECAN HYDROCHLORIDE
     Dosage: 252 MG
     Route: 065
     Dates: start: 20170508
  11. IRINOTECAN HYDROCHLORIDE [Suspect]
     Active Substance: IRINOTECAN HYDROCHLORIDE
     Dosage: 260 MG
     Route: 065
     Dates: start: 20171212
  12. IRINOTECAN HYDROCHLORIDE [Suspect]
     Active Substance: IRINOTECAN HYDROCHLORIDE
     Dosage: 255 MG
     Route: 065
     Dates: start: 20171227
  13. IRINOTECAN HYDROCHLORIDE [Suspect]
     Active Substance: IRINOTECAN HYDROCHLORIDE
     Dosage: 252 MG
     Route: 065
     Dates: start: 20180110
  14. IRINOTECAN HYDROCHLORIDE [Suspect]
     Active Substance: IRINOTECAN HYDROCHLORIDE
     Dosage: 221 MG
     Route: 065
     Dates: start: 20180723
  15. IRINOTECAN HYDROCHLORIDE [Suspect]
     Active Substance: IRINOTECAN HYDROCHLORIDE
     Dosage: 316 MG
     Route: 065
     Dates: start: 20180806
  16. FLUOROURACIL [Suspect]
     Active Substance: FLUOROURACIL
     Indication: Colorectal cancer metastatic
     Dosage: 3350 MG
     Route: 042
     Dates: start: 20170206
  17. FLUOROURACIL [Suspect]
     Active Substance: FLUOROURACIL
     Dosage: 1650 MG
     Route: 042
     Dates: start: 20170206
  18. FLUOROURACIL [Suspect]
     Active Substance: FLUOROURACIL
     Dosage: 550 MG
     Route: 042
     Dates: start: 20170220
  19. FLUOROURACIL [Suspect]
     Active Substance: FLUOROURACIL
     Dosage: 3350 MG
     Route: 042
     Dates: start: 20170220
  20. FLUOROURACIL [Suspect]
     Active Substance: FLUOROURACIL
     Dosage: 560 MG
     Route: 042
     Dates: start: 20170508
  21. FLUOROURACIL [Suspect]
     Active Substance: FLUOROURACIL
     Dosage: 3360 MG
     Route: 042
     Dates: start: 20170508
  22. FLUOROURACIL [Suspect]
     Active Substance: FLUOROURACIL
     Dosage: 575 MG
     Route: 042
     Dates: start: 20171212
  23. FLUOROURACIL [Suspect]
     Active Substance: FLUOROURACIL
     Dosage: 3425 MG
     Route: 042
     Dates: start: 20171212
  24. FLUOROURACIL [Suspect]
     Active Substance: FLUOROURACIL
     Dosage: 560 MG
     Route: 042
     Dates: start: 20180110
  25. FLUOROURACIL [Suspect]
     Active Substance: FLUOROURACIL
     Dosage: 3360 MG
     Route: 042
     Dates: start: 20180110
  26. FLUOROURACIL [Suspect]
     Active Substance: FLUOROURACIL
     Dosage: 492 MG
     Route: 042
     Dates: start: 20180723
  27. FLUOROURACIL [Suspect]
     Active Substance: FLUOROURACIL
     Dosage: 2956 MG
     Route: 042
     Dates: start: 20180723
  28. FLUOROURACIL [Suspect]
     Active Substance: FLUOROURACIL
     Dosage: 4224 MG
     Route: 042
     Dates: start: 20180806
  29. FLUOROURACIL [Suspect]
     Active Substance: FLUOROURACIL
     Dosage: 704 MG
     Route: 042
     Dates: start: 20180806
  30. PANITUMUMAB [Suspect]
     Active Substance: PANITUMUMAB
     Indication: Colorectal cancer metastatic
     Dosage: 400 MG
     Route: 042
     Dates: start: 20170206
  31. PANITUMUMAB [Suspect]
     Active Substance: PANITUMUMAB
     Dosage: 408 MG
     Route: 042
     Dates: start: 20170508
  32. PANITUMUMAB [Suspect]
     Active Substance: PANITUMUMAB
     Dosage: 426 MG
     Route: 042
     Dates: start: 20171212
  33. PANITUMUMAB [Suspect]
     Active Substance: PANITUMUMAB
     Dosage: 425 MG
     Route: 042
     Dates: start: 20171227
  34. PANITUMUMAB [Suspect]
     Active Substance: PANITUMUMAB
     Dosage: 408 MG
     Route: 042
     Dates: start: 20180110
  35. PANITUMUMAB [Suspect]
     Active Substance: PANITUMUMAB
     Dosage: 414 MG
     Route: 042
     Dates: start: 20180723
  36. ONDANSETRON RATIOPHARM [Concomitant]
     Indication: Prophylaxis
     Dosage: 8 MG, DAILY
     Route: 048
     Dates: start: 20180123
  37. METOPROLOL SUCCINATE [Concomitant]
     Active Substance: METOPROLOL SUCCINATE
     Indication: Hypertension
     Dosage: 47 MG, DAILY
     Route: 048
     Dates: start: 2014
  38. SIMVASTATIN [Concomitant]
     Active Substance: SIMVASTATIN
     Indication: Hypercholesterolaemia
     Dosage: 20 MG, DAILY
     Route: 048
     Dates: start: 2014
  39. AMLODIPINE MALEATE [Concomitant]
     Active Substance: AMLODIPINE MALEATE
     Indication: Hypertension
     Dosage: 5 MG, DAILY
     Route: 048
     Dates: start: 2014
  40. GLIMEPIRIDE RATIOPHARM [Concomitant]
     Indication: Diabetes mellitus
     Dosage: 1 MG, DAILY
     Route: 048
     Dates: start: 2014
  41. PANTOZOL [Concomitant]
     Active Substance: PANTOPRAZOLE SODIUM
     Indication: Prophylaxis
     Dosage: 40 MG, DAILY
     Route: 048
     Dates: start: 2014
  42. DOXYCYCLINE RATIOPHARM [DOXYCYCLINE] [Concomitant]
     Indication: Prophylaxis
     Dosage: 100 MG, DAILY
     Route: 048
     Dates: start: 20171204
  43. ASPIRIN [Concomitant]
     Active Substance: ASPIRIN
     Indication: Prophylaxis
     Dosage: 100 MG, DAILY
     Route: 048
     Dates: start: 2014
  44. METFORMIN HYDROCHLORIDE [Concomitant]
     Active Substance: METFORMIN HYDROCHLORIDE
     Indication: Diabetes mellitus
     Dosage: 1000 MG, DAILY
     Route: 048
     Dates: start: 2014
  45. METROGEL [Concomitant]
     Active Substance: METRONIDAZOLE
     Indication: Prophylaxis
     Dosage: 75 UNK, TID
     Route: 062
     Dates: start: 20171227
  46. RAMIPRIL [Concomitant]
     Active Substance: RAMIPRIL
     Indication: Hypertension
     Dosage: 10 MG, DAILY
     Route: 048
     Dates: start: 2014

REACTIONS (1)
  - Dermatitis acneiform [Recovered/Resolved]

NARRATIVE: CASE EVENT DATE: 20180815
